FAERS Safety Report 5314466-6 (Version None)
Quarter: 2007Q2

REPORT INFORMATION
  Report Type: 
  Country: None (occurrence: None)
  Receive Date: 20070430
  Receipt Date: 20070430
  Transmission Date: 20071010
  Serious: Yes (Hospitalization, Disabling)
  Sender: FDA-Public Use
  Company Number: None

PATIENT
  Sex: Female

DRUGS (3)
  1. HERCEPTIN [Suspect]
     Indication: BREAST CANCER STAGE II
     Dosage: 6MG/KG Q3WEEKS IV
     Route: 042
     Dates: start: 20061001, end: 20070201
  2. HERCEPTIN [Suspect]
     Indication: METASTASES TO LYMPH NODES
     Dosage: 6MG/KG Q3WEEKS IV
     Route: 042
     Dates: start: 20061001, end: 20070201
  3. ARIMIDEX [Concomitant]

REACTIONS (4)
  - BLINDNESS UNILATERAL [None]
  - HEPATITIS [None]
  - HERPES OESOPHAGITIS [None]
  - PARAPLEGIA [None]
